FAERS Safety Report 23610596 (Version 1)
Quarter: 2024Q1

REPORT INFORMATION
  Report Type: Spontaneous
  Country: US (occurrence: None)
  Receive Date: 20240307
  Receipt Date: 20240307
  Transmission Date: 20240409
  Serious: Yes (Life-Threatening, Hospitalization)
  Sender: FDA-Public Use
  Company Number: None

PATIENT
  Age: 43 Year
  Sex: Male
  Weight: 68.85 kg

DRUGS (1)
  1. .DELTA.9-TETRAHYDROCANNABINOL\HERBALS [Suspect]
     Active Substance: .DELTA.9-TETRAHYDROCANNABINOL\HERBALS
     Indication: Anxiety
     Dosage: FREQUENCY : 3 TIMES A DAY;?
     Route: 055

REACTIONS (2)
  - Substance-induced psychotic disorder [None]
  - Suicide attempt [None]

NARRATIVE: CASE EVENT DATE: 20240218
